FAERS Safety Report 7863278-8 (Version None)
Quarter: 2011Q4

REPORT INFORMATION
  Report Type: 
  Country: None (occurrence: None)
  Receive Date: 20111027
  Receipt Date: 20101201
  Transmission Date: 20120403
  Serious: No
  Sender: FDA-Public Use
  Company Number: US-AMGEN-USASP2010007118

PATIENT
  Age: 57 Year
  Sex: Female

DRUGS (3)
  1. ENBREL [Suspect]
     Indication: PSORIATIC ARTHROPATHY
     Dosage: 50 MG, QWK
     Dates: start: 20050924, end: 20101101
  2. PLAQUENIL [Concomitant]
     Dates: start: 20101101
  3. METHOTREXATE [Concomitant]
     Dates: start: 20030101

REACTIONS (1)
  - SINUSITIS [None]
